FAERS Safety Report 7663285 (Version 4)
Quarter: 2012Q4

REPORT INFORMATION
  Report Type: Report from Study
  Country: FR (occurrence: FR)
  Receive Date: 20101110
  Receipt Date: 20121129
  Transmission Date: 20130627
  Serious: Yes (Other)
  Sender: FDA-Public Use
  Company Number: FR-BRISTOL-MYERS SQUIBB COMPANY-15361140

PATIENT
  Age: 29 Year
  Sex: Female

DRUGS (10)
  1. APIXABAN [Suspect]
     Indication: EMBOLISM
     Route: 048
     Dates: start: 20101021, end: 20101022
  2. WARFARIN SODIUM [Suspect]
     Indication: EMBOLISM
     Route: 048
     Dates: start: 20101021, end: 20101021
  3. ENOXAPARIN [Suspect]
     Indication: EMBOLISM
     Route: 058
     Dates: start: 20101021, end: 20101022
  4. BLINDED: PLACEBO [Suspect]
     Indication: EMBOLISM
     Dosage: with enox: SC  end date 22oct10.
With api: Oral end date 22oct10
with war: oral End date 21oct10
     Dates: start: 20101021, end: 201010
  5. ABILIFY [Suspect]
  6. IXEL [Suspect]
  7. PROPRANOLOL [Concomitant]
  8. LEPTICUR [Concomitant]
  9. LEVOTHYROXINE [Concomitant]
  10. INEXIUM [Concomitant]
     Dates: start: 20101021

REACTIONS (1)
  - Mental disorder [Recovered/Resolved]
